FAERS Safety Report 10430209 (Version 1)
Quarter: 2014Q3

REPORT INFORMATION
  Report Type: Spontaneous
  Country: US (occurrence: None)
  Receive Date: 20140808
  Receipt Date: 20140808
  Transmission Date: 20150326
  Serious: No
  Sender: FDA-Public Use
  Company Number: US-015436

PATIENT
  Age: 55 Year
  Sex: Female
  Weight: 73.48 kg

DRUGS (2)
  1. PREPOPIK [Suspect]
     Active Substance: ANHYDROUS CITRIC ACID\MAGNESIUM OXIDE\SODIUM PICOSULFATE
     Indication: BOWEL PREPARATION
     Dosage: FIRST PACKET: 27 MAR 2014 AT 5 PM; SECOND PACKET:  28 MAR 2014 AT 9 PM. ORAL
     Dates: start: 20140327, end: 20140328
  2. ALDACTAZIDE [Concomitant]
     Active Substance: HYDROCHLOROTHIAZIDE\SPIRONOLACTONE

REACTIONS (5)
  - Nausea [None]
  - Wrong technique in drug usage process [None]
  - Metrorrhagia [None]
  - Headache [None]
  - Product solubility abnormal [None]

NARRATIVE: CASE EVENT DATE: 20140327
